FAERS Safety Report 9103307 (Version 1)
Quarter: 2013Q1

REPORT INFORMATION
  Report Type: Spontaneous
  Country: MX (occurrence: MX)
  Receive Date: 20130219
  Receipt Date: 20130219
  Transmission Date: 20140127
  Serious: Yes (Other)
  Sender: FDA-Public Use
  Company Number: MX-BAYER-2013-018117

PATIENT
  Age: 31 Year
  Sex: Female

DRUGS (3)
  1. QLAIRA [Suspect]
     Indication: CONTRACEPTION
     Dosage: 3 MG, QD
     Route: 048
     Dates: start: 2012, end: 201301
  2. QLAIRA [Suspect]
     Indication: MENSTRUATION IRREGULAR
  3. TAPAZOL [Concomitant]
     Indication: HYPERTHYROIDISM

REACTIONS (1)
  - Vasculitis [Unknown]
